FAERS Safety Report 5177037-0 (Version None)
Quarter: 2006Q4

REPORT INFORMATION
  Report Type: 
  Country: None (occurrence: None)
  Receive Date: 20061218
  Receipt Date: 20061018
  Transmission Date: 20070319
  Serious: Yes (Hospitalization)
  Sender: FDA-Public Use
  Company Number: FR-GLAXOSMITHKLINE-B0443974A

PATIENT
  Age: 3 Year
  Sex: Male
  Weight: 13 kg

DRUGS (3)
  1. LANVIS [Suspect]
     Indication: LYMPHOCYTIC LEUKAEMIA
     Route: 048
     Dates: start: 20060919, end: 20060930
  2. ENDOXAN [Concomitant]
     Indication: LYMPHOCYTIC LEUKAEMIA
     Dosage: 1GM2 PER DAY
     Dates: start: 20060919, end: 20060919
  3. ARACYTINE [Concomitant]
     Indication: LYMPHOCYTIC LEUKAEMIA
     Dosage: 75MGM2 PER DAY
     Dates: start: 20060921, end: 20061001

REACTIONS (14)
  - ABDOMINAL DISTENSION [None]
  - ASCITES [None]
  - FEBRILE BONE MARROW APLASIA [None]
  - HAEMORRHAGIC DISORDER [None]
  - HEPATIC PAIN [None]
  - HEPATOMEGALY [None]
  - JAUNDICE [None]
  - PALLOR [None]
  - PLEURAL EFFUSION [None]
  - PORTAL HYPERTENSION [None]
  - PROTHROMBIN LEVEL DECREASED [None]
  - TACHYPNOEA [None]
  - THROMBOCYTOPENIA [None]
  - VENOOCCLUSIVE LIVER DISEASE [None]
